FAERS Safety Report 24963321 (Version 3)
Quarter: 2025Q3

REPORT INFORMATION
  Report Type: Report from Study
  Country: JP (occurrence: JP)
  Receive Date: 20250213
  Receipt Date: 20250701
  Transmission Date: 20251020
  Serious: Yes (Other)
  Sender: BRISTOL-MYERS SQUIBB COMPANY
  Company Number: JP-ONO-2025JP002138

PATIENT
  Age: 78 Year
  Sex: Female
  Weight: 50.2 kg

DRUGS (5)
  1. OPDIVO [Suspect]
     Active Substance: NIVOLUMAB
     Indication: Malignant melanoma
     Dosage: 95.2 MG (2 MG/KG) [5 ADMINISTRATIONS])
     Route: 041
     Dates: start: 20160121, end: 20160414
  2. OPDIVO [Suspect]
     Active Substance: NIVOLUMAB
     Dosage: 98 MG (2 MG/KG), Q3W. [47 ADMINISTRATIONS])
     Route: 041
     Dates: start: 20160512, end: 20181025
  3. OPDIVO [Suspect]
     Active Substance: NIVOLUMAB
     Route: 041
     Dates: start: 20181115, end: 20211209
  4. OPDIVO [Suspect]
     Active Substance: NIVOLUMAB
     Route: 041
     Dates: start: 20220106, end: 20240125
  5. ETIZOLAM [Concomitant]
     Active Substance: ETIZOLAM
     Indication: Product used for unknown indication
     Route: 048

REACTIONS (4)
  - Lacunar infarction [Recovering/Resolving]
  - Lung disorder [Recovered/Resolved]
  - Prescribed underdose [Unknown]
  - Inappropriate schedule of product administration [Unknown]

NARRATIVE: CASE EVENT DATE: 20160121
